FAERS Safety Report 25409988 (Version 1)
Quarter: 2025Q2

REPORT INFORMATION
  Report Type: Spontaneous
  Country: US (occurrence: US)
  Receive Date: 20250607
  Receipt Date: 20250607
  Transmission Date: 20250717
  Serious: Yes (Hospitalization, Other)
  Sender: SANOFI AVENTIS
  Company Number: US-SA-2025SA158591

PATIENT
  Age: 73 Year
  Sex: Female

DRUGS (1)
  1. KEVZARA [Suspect]
     Active Substance: SARILUMAB
     Indication: Polymyalgia rheumatica
     Dosage: 200 MG, QOW
     Route: 058
     Dates: start: 20250421, end: 20250526

REACTIONS (2)
  - Hip fracture [Unknown]
  - Fall [Unknown]

NARRATIVE: CASE EVENT DATE: 20250505
